FAERS Safety Report 4895163-8 (Version None)
Quarter: 2006Q1

REPORT INFORMATION
  Report Type: 
  Country: None (occurrence: None)
  Receive Date: 20060130
  Receipt Date: 20060119
  Transmission Date: 20060701
  Serious: Yes (Hospitalization, Other)
  Sender: FDA-Public Use
  Company Number: DE-JNJFOC-20051105494

PATIENT
  Sex: Female
  Weight: 65 kg

DRUGS (4)
  1. RISPERDAL [Suspect]
     Route: 048
  2. RISPERDAL [Suspect]
     Route: 048
  3. ZYPREXA [Suspect]
     Route: 048
  4. ZYPREXA [Suspect]
     Route: 048

REACTIONS (7)
  - OVERDOSE [None]
  - RESPIRATORY DEPRESSION [None]
  - RHABDOMYOLYSIS [None]
  - SINUS TACHYCARDIA [None]
  - SOMNOLENCE [None]
  - SUICIDE ATTEMPT [None]
  - VOMITING [None]
